FAERS Safety Report 10199486 (Version 1)
Quarter: 2014Q2

REPORT INFORMATION
  Report Type: Spontaneous
  Country: US (occurrence: None)
  Receive Date: 20140523
  Receipt Date: 20140523
  Transmission Date: 20141212
  Serious: Yes (Life-Threatening, Hospitalization, Disabling)
  Sender: FDA-Public Use
  Company Number: None

PATIENT
  Age: 70 Year
  Sex: Female
  Weight: 65.77 kg

DRUGS (1)
  1. METHYLPREDNISOLONE ACETATE 80MG NECC [Suspect]
     Indication: SPINAL COLUMN STENOSIS
     Dosage: INJECTION  3 IN 8 WEEKS  INJECTED INTO SPINAL AREA
     Dates: start: 20110621, end: 20110729

REACTIONS (6)
  - Intervertebral discitis [None]
  - Osteomyelitis [None]
  - Spinal cord oedema [None]
  - Endocarditis [None]
  - Cerebrovascular accident [None]
  - Embolism [None]
